FAERS Safety Report 7911650-X (Version None)
Quarter: 2011Q4

REPORT INFORMATION
  Report Type: 
  Country: None (occurrence: None)
  Receive Date: 20111114
  Receipt Date: 20111114
  Transmission Date: 20120403
  Serious: Yes (Hospitalization, Other)
  Sender: FDA-Public Use
  Company Number: None

PATIENT
  Age: 52 Year
  Sex: Female
  Weight: 94.347 kg

DRUGS (1)
  1. LEVOFLOXACIN [Suspect]
     Indication: PYELONEPHRITIS
     Dosage: 250MG
     Route: 048
     Dates: start: 20110918, end: 20110925

REACTIONS (9)
  - BALANCE DISORDER [None]
  - PERIPHERAL SENSORY NEUROPATHY [None]
  - BURNING SENSATION [None]
  - PARAESTHESIA [None]
  - MUSCULAR WEAKNESS [None]
  - MUSCULOSKELETAL PAIN [None]
  - HYPOAESTHESIA [None]
  - PRURITUS [None]
  - PAIN IN EXTREMITY [None]
